FAERS Safety Report 12275583 (Version 2)
Quarter: 2016Q2

REPORT INFORMATION
  Report Type: Report from Study
  Country: CA (occurrence: CA)
  Receive Date: 20160417
  Receipt Date: 20160512
  Transmission Date: 20160815
  Serious: Yes (Hospitalization)
  Sender: FDA-Public Use
  Company Number: CA-ROCHE-1743038

PATIENT
  Sex: Female

DRUGS (8)
  1. LOSARTAN. [Concomitant]
     Active Substance: LOSARTAN
  2. ATORVASTATIN [Concomitant]
     Active Substance: ATORVASTATIN
  3. ZOPICLONE [Concomitant]
     Active Substance: ZOPICLONE
  4. ASA [Concomitant]
     Active Substance: ASPIRIN
     Route: 065
  5. ESBRIET [Suspect]
     Active Substance: PIRFENIDONE
     Indication: IDIOPATHIC PULMONARY FIBROSIS
     Route: 048
     Dates: start: 20151225
  6. ESBRIET [Suspect]
     Active Substance: PIRFENIDONE
     Route: 048
     Dates: start: 20160115, end: 2016
  7. NEXIUM [Concomitant]
     Active Substance: ESOMEPRAZOLE MAGNESIUM
  8. FELODIPINE. [Concomitant]
     Active Substance: FELODIPINE

REACTIONS (1)
  - Constipation [Unknown]
